FAERS Safety Report 13937541 (Version 1)
Quarter: 2017Q3

REPORT INFORMATION
  Report Type: Spontaneous
  Country: US (occurrence: US)
  Receive Date: 20170905
  Receipt Date: 20170905
  Transmission Date: 20171127
  Serious: Yes (Other)
  Sender: FDA-Public Use
  Company Number: US-SA-2017SA156612

PATIENT
  Age: 56 Year
  Sex: Female
  Weight: 40.82 kg

DRUGS (1)
  1. LEVOCETIRIZINE [Suspect]
     Active Substance: LEVOCETIRIZINE
     Indication: PRURITUS
     Route: 048
     Dates: start: 2007

REACTIONS (3)
  - Fatigue [Recovered/Resolved]
  - Leukaemia [Not Recovered/Not Resolved]
  - Hypersensitivity [Unknown]
